FAERS Safety Report 22387675 (Version 1)
Quarter: 2023Q2

REPORT INFORMATION
  Report Type: Spontaneous
  Country: IT (occurrence: IT)
  Receive Date: 20230531
  Receipt Date: 20230531
  Transmission Date: 20230721
  Serious: Yes (Other)
  Sender: FDA-Public Use
  Company Number: None

PATIENT
  Age: 61 Year
  Sex: Female

DRUGS (2)
  1. KEPPRA [Suspect]
     Active Substance: LEVETIRACETAM
     Indication: Drug abuse
     Dosage: THE PATIENT TOOK 15 KEPPRA TABLETS IN TOTAL
     Route: 048
     Dates: start: 20230419, end: 20230419
  2. PHENOBARBITAL [Suspect]
     Active Substance: PHENOBARBITAL
     Indication: Drug abuse
     Dosage: THE PATIENT TOOK A TOTAL OF 15 GARDENALE TABLETS ORALLY
     Route: 048
     Dates: start: 20230419, end: 20230419

REACTIONS (3)
  - Drug abuse [Recovering/Resolving]
  - Toxicity to various agents [Recovering/Resolving]
  - Headache [Recovering/Resolving]

NARRATIVE: CASE EVENT DATE: 20230419
